FAERS Safety Report 22025378 (Version 2)
Quarter: 2025Q2

REPORT INFORMATION
  Report Type: Spontaneous
  Country: US (occurrence: US)
  Receive Date: 20230223
  Receipt Date: 20250425
  Transmission Date: 20250717
  Serious: No
  Sender: ROCHE
  Company Number: US-ROCHE-3102929

PATIENT
  Sex: Male
  Weight: 86.18 kg

DRUGS (3)
  1. XOLAIR [Suspect]
     Active Substance: OMALIZUMAB
     Indication: Idiopathic urticaria
     Route: 058
     Dates: end: 202412
  2. XOLAIR [Suspect]
     Active Substance: OMALIZUMAB
     Indication: Chronic spontaneous urticaria
  3. CLONAZEPAM [Concomitant]
     Active Substance: CLONAZEPAM
     Indication: Generalised anxiety disorder
     Route: 048
     Dates: start: 2010

REACTIONS (3)
  - Urticaria [Unknown]
  - Eye swelling [Unknown]
  - Pain [Unknown]
